FAERS Safety Report 10079497 (Version 2)
Quarter: 2014Q2

REPORT INFORMATION
  Report Type: Spontaneous
  Country: US (occurrence: US)
  Receive Date: 20140415
  Receipt Date: 20140502
  Transmission Date: 20141212
  Serious: No
  Sender: FDA-Public Use
  Company Number: US-PFIZER INC-2014100059

PATIENT
  Age: 72 Year
  Sex: Male

DRUGS (4)
  1. SUTENT [Suspect]
     Indication: RENAL CANCER
     Dosage: UNK
  2. METOCLOPRAMIDE HYDROCHLORIDE [Concomitant]
     Dosage: UNK
  3. LEVOTHYROXINE SODIUM [Concomitant]
     Dosage: UNK
  4. ONDANSETRON [Concomitant]
     Dosage: UNK

REACTIONS (2)
  - Rash generalised [Unknown]
  - Urticaria [Unknown]
